FAERS Safety Report 9059641 (Version 1)
Quarter: 2013Q1

REPORT INFORMATION
  Report Type: Spontaneous
  Country: GB (occurrence: None)
  Receive Date: 20130212
  Receipt Date: 20130212
  Transmission Date: 20140127
  Serious: No
  Sender: FDA-Public Use
  Company Number: None

PATIENT
  Sex: 0

DRUGS (1)
  1. FINASTERIDE [Suspect]

REACTIONS (6)
  - Penile size reduced [None]
  - Nipple pain [None]
  - Breast enlargement [None]
  - Libido decreased [None]
  - Sensory loss [None]
  - Semen volume decreased [None]
